FAERS Safety Report 7423493-4 (Version None)
Quarter: 2011Q1

REPORT INFORMATION
  Report Type: 
  Country: None (occurrence: None)
  Receive Date: 20110302
  Receipt Date: 20110103
  Transmission Date: 20110831
  Serious: No
  Sender: FDA-Public Use
  Company Number: 024790

PATIENT
  Sex: Female
  Weight: 59.9 kg

DRUGS (11)
  1. FERROUS SULFATE TAB [Concomitant]
  2. METHOTREXATE [Suspect]
     Indication: RHEUMATOID ARTHRITIS
     Dosage: (0.5 MG 1X/WEEK)
     Dates: start: 20101101
  3. METHOTREXATE [Suspect]
     Indication: SYSTEMIC LUPUS ERYTHEMATOSUS
     Dosage: (0.5 MG 1X/WEEK)
     Dates: start: 20101101
  4. METHOTREXATE [Suspect]
     Indication: RHEUMATOID ARTHRITIS
     Dosage: (0.5 MG 1X/WEEK)
     Dates: start: 20100601, end: 20101101
  5. METHOTREXATE [Suspect]
     Indication: SYSTEMIC LUPUS ERYTHEMATOSUS
     Dosage: (0.5 MG 1X/WEEK)
     Dates: start: 20100601, end: 20101101
  6. LEXAPRO [Concomitant]
  7. CIMZIA [Suspect]
     Indication: CROHN'S DISEASE
     Dosage: (TWO INJECTIONS, MONTHLY SUBCUTANEOUS)
     Route: 058
     Dates: start: 20100501
  8. FOLIC ACID [Concomitant]
  9. HYDROXYCHLOROQUINE [Concomitant]
  10. PREDNISONE [Concomitant]
  11. XANAX [Concomitant]

REACTIONS (2)
  - WEIGHT INCREASED [None]
  - CONSTIPATION [None]
